FAERS Safety Report 9474873 (Version 2)
Quarter: 2013Q3

REPORT INFORMATION
  Report Type: Report from Study
  Country: CA (occurrence: CA)
  Receive Date: 20130823
  Receipt Date: 20130911
  Transmission Date: 20140515
  Serious: Yes (Hospitalization, Other)
  Sender: FDA-Public Use
  Company Number: CA-ABBOTT-13P-028-1136423-00

PATIENT
  Age: 40 Year
  Sex: Male
  Weight: 165 kg

DRUGS (7)
  1. HUMIRA [Suspect]
     Indication: PSORIASIS
     Route: 058
  2. HUMIRA [Suspect]
     Route: 058
     Dates: start: 20130208
  3. HUMIRA [Suspect]
     Route: 058
  4. UNKNOWN DRUG [Concomitant]
     Indication: PRODUCT USED FOR UNKNOWN INDICATION
  5. METOPROLOL [Concomitant]
     Indication: PRODUCT USED FOR UNKNOWN INDICATION
  6. FOLIC ACID [Concomitant]
     Indication: PRODUCT USED FOR UNKNOWN INDICATION
  7. RAMIPRIL [Concomitant]
     Indication: PRODUCT USED FOR UNKNOWN INDICATION

REACTIONS (6)
  - Visual impairment [Recovering/Resolving]
  - Diplopia [Recovering/Resolving]
  - Cardiac failure [Not Recovered/Not Resolved]
  - Cardiomyopathy [Unknown]
  - Myasthenia gravis [Not Recovered/Not Resolved]
  - Dyspnoea [Unknown]
